FAERS Safety Report 13194681 (Version 2)
Quarter: 2018Q2

REPORT INFORMATION
  Report Type: Report from Study
  Country: US (occurrence: US)
  Receive Date: 20170207
  Receipt Date: 20180413
  Transmission Date: 20180711
  Serious: Yes (Other)
  Sender: FDA-Public Use
  Company Number: US-MYLANLABS-2017M1007251

PATIENT
  Age: 19 Year
  Sex: Female

DRUGS (4)
  1. KETAMINE [Suspect]
     Active Substance: KETAMINE
     Indication: OESOPHAGEAL SPASM
     Route: 048
  2. GABAPENTIN. [Concomitant]
     Active Substance: GABAPENTIN
     Indication: OESOPHAGEAL SPASM
     Route: 065
  3. ESOMEPRAZOLE [Concomitant]
     Active Substance: ESOMEPRAZOLE
     Indication: OESOPHAGEAL SPASM
     Route: 065
  4. RANITIDINE. [Concomitant]
     Active Substance: RANITIDINE
     Indication: OESOPHAGEAL SPASM
     Route: 065

REACTIONS (1)
  - Depressed level of consciousness [Unknown]
